FAERS Safety Report 5845023-0 (Version None)
Quarter: 2008Q3

REPORT INFORMATION
  Report Type: 
  Country: None (occurrence: None)
  Receive Date: 20080814
  Receipt Date: 20080806
  Transmission Date: 20090109
  Serious: Yes (Other)
  Sender: FDA-Public Use
  Company Number: US-ROCHE-546464

PATIENT
  Age: 73 Year
  Sex: Female

DRUGS (3)
  1. BONIVA [Suspect]
     Indication: ARTHRITIS
     Route: 042
     Dates: start: 20070401
  2. VACCINE NOS [Suspect]
     Indication: INFECTION PROPHYLAXIS
     Route: 065
     Dates: start: 20071031
  3. INFLUENZA VACCINE [Suspect]
     Route: 065
     Dates: start: 20071031

REACTIONS (3)
  - ARTHRITIS [None]
  - PAIN IN EXTREMITY [None]
  - STAPHYLOCOCCAL INFECTION [None]
